FAERS Safety Report 16645029 (Version 3)
Quarter: 2020Q4

REPORT INFORMATION
  Report Type: Spontaneous
  Country: US (occurrence: US)
  Receive Date: 20190729
  Receipt Date: 20201127
  Transmission Date: 20210113
  Serious: No
  Sender: FDA-Public Use
  Company Number: US-SA-2019SA201873

PATIENT

DRUGS (1)
  1. DUPIXENT [Suspect]
     Active Substance: DUPILUMAB
     Indication: DERMATITIS ATOPIC
     Dosage: 300 MG, QOW
     Route: 058
     Dates: start: 20190226, end: 2019

REACTIONS (7)
  - Pruritus [Unknown]
  - Eye pruritus [Recovered/Resolved]
  - Sinus disorder [Recovering/Resolving]
  - Vision blurred [Recovered/Resolved]
  - Lacrimation increased [Recovered/Resolved]
  - Dermatitis atopic [Unknown]
  - Visual impairment [Recovered/Resolved]

NARRATIVE: CASE EVENT DATE: 2019
